FAERS Safety Report 5525796-7 (Version None)
Quarter: 2007Q4

REPORT INFORMATION
  Report Type: 
  Country: None (occurrence: None)
  Receive Date: 20071126
  Receipt Date: 20071119
  Transmission Date: 20080405
  Serious: Yes (Disabling, Other)
  Sender: FDA-Public Use
  Company Number: PHBS2007BE17374

PATIENT
  Age: 54 Year
  Sex: Female

DRUGS (5)
  1. ZOMETA [Suspect]
     Indication: METASTASIS
     Dates: start: 20060926, end: 20070619
  2. PALLADONE [Concomitant]
     Dosage: 8 MG, BID
  3. ELTHYRONE [Concomitant]
     Dosage: 0.075 MG/DAY
  4. ACETAMINOPHEN [Concomitant]
  5. XANAX [Concomitant]
     Dosage: 0.5 UNK, UNK

REACTIONS (3)
  - OSTEONECROSIS [None]
  - TOOTH DISORDER [None]
  - TOOTH EXTRACTION [None]
